FAERS Safety Report 23508491 (Version 1)
Quarter: 2024Q1

REPORT INFORMATION
  Report Type: Spontaneous
  Country: US (occurrence: US)
  Receive Date: 20240209
  Receipt Date: 20240209
  Transmission Date: 20240410
  Serious: Yes (Hospitalization, Other)
  Sender: FDA-Public Use
  Company Number: US-FreseniusKabi-FK202402237

PATIENT
  Age: 75 Year
  Sex: Female

DRUGS (6)
  1. FLUDARABINE [Suspect]
     Active Substance: FLUDARABINE PHOSPHATE
     Indication: Chemotherapy
  2. CYCLOPHOSPHAMIDE [Suspect]
     Active Substance: CYCLOPHOSPHAMIDE
     Indication: Chemotherapy
     Dosage: LYMPHODEPLETING CHEMOTHERAPY
  3. GENETICALLY-MODIFIED AUTOLOGOUS T CELLS NOS [Suspect]
     Active Substance: GENETICALLY-MODIFIED AUTOLOGOUS T CELLS NOS
     Indication: Chronic lymphocytic leukaemia
     Dosage: LYMPHODEPLETING CHEMOTHERAPY?CAR-T CELL INFUSION WITH TISA-CEL 5X10^8 ANTI CD19 CAR-T CELLS ON 4/18/
     Dates: start: 20220418
  4. GENETICALLY-MODIFIED AUTOLOGOUS T CELLS NOS [Suspect]
     Active Substance: GENETICALLY-MODIFIED AUTOLOGOUS T CELLS NOS
     Indication: Richter^s syndrome
  5. TISAGENLECLEUCEL [Suspect]
     Active Substance: TISAGENLECLEUCEL
     Indication: Chronic lymphocytic leukaemia
     Dosage: LYMPHODEPLETING CHEMOTHERAPY?CAR-T CELL INFUSION WITH TISA-CEL 5X10^8 ANTI CD19 CAR-T CELLS ON 4/18/
     Dates: start: 20220418
  6. TISAGENLECLEUCEL [Suspect]
     Active Substance: TISAGENLECLEUCEL
     Indication: Richter^s syndrome

REACTIONS (1)
  - Cytokine release syndrome [Unknown]
